FAERS Safety Report 9277283 (Version 1)
Quarter: 2013Q2

REPORT INFORMATION
  Report Type: Spontaneous
  Country: FR (occurrence: FR)
  Receive Date: 20130508
  Receipt Date: 20130508
  Transmission Date: 20140414
  Serious: Yes (Hospitalization)
  Sender: FDA-Public Use
  Company Number: FR-ROCHE-1221607

PATIENT
  Age: 44 Year
  Sex: Male

DRUGS (7)
  1. ZELBORAF [Suspect]
     Indication: METASTATIC MALIGNANT MELANOMA
     Route: 048
  2. OXYCONTIN [Concomitant]
  3. OXYNORM [Concomitant]
  4. DOLIPRANE [Concomitant]
  5. ACUPAN [Concomitant]
  6. ATARAX [Concomitant]
  7. DUPHALAC [Concomitant]

REACTIONS (4)
  - Dermatitis exfoliative [Recovered/Resolved]
  - Pyrexia [Recovered/Resolved]
  - Hepatitis cholestatic [Recovered/Resolved]
  - Eosinophilia [Recovered/Resolved]
